FAERS Safety Report 4528949-X (Version None)
Quarter: 2004Q4

REPORT INFORMATION
  Report Type: 
  Country: None (occurrence: None)
  Receive Date: 20041214
  Receipt Date: 20041124
  Transmission Date: 20050328
  Serious: Yes (Death)
  Sender: FDA-Public Use
  Company Number: A01200402647

PATIENT
  Age: 56 Year
  Sex: Male

DRUGS (11)
  1. ELOXATIN [Suspect]
     Indication: PANCREATIC CARCINOMA
     Dosage: 130 MG/M2 OTHER INTRAVENOUS NOS A FEW MINS
     Route: 042
     Dates: start: 20040227, end: 20040227
  2. GEMZAR [Concomitant]
  3. DURAGESIC [Concomitant]
  4. KAPANOL (MORPHINE SULFATE) [Concomitant]
  5. DEXA [Concomitant]
  6. VIOXX [Concomitant]
  7. NEXIUM [Concomitant]
  8. NEURONTIN [Concomitant]
  9. LACTULOSE [Concomitant]
  10. TENORMIN [Concomitant]
  11. LASIX [Concomitant]

REACTIONS (3)
  - CARDIAC ARREST [None]
  - INFUSION RELATED REACTION [None]
  - THERAPY NON-RESPONDER [None]
